FAERS Safety Report 6427720-1 (Version None)
Quarter: 2009Q4

REPORT INFORMATION
  Report Type: 
  Country: None (occurrence: None)
  Receive Date: 20091105
  Receipt Date: 20091026
  Transmission Date: 20100525
  Serious: Yes (Hospitalization, Other)
  Sender: FDA-Public Use
  Company Number: US-BIOGENIDEC-2009BI032629

PATIENT
  Sex: Female
  Weight: 85 kg

DRUGS (9)
  1. AVONEX [Suspect]
     Indication: MULTIPLE SCLEROSIS
     Route: 030
     Dates: start: 20070301, end: 20070101
  2. IBUPROFEN [Concomitant]
     Indication: PAIN
  3. FLEXERIL [Concomitant]
  4. XANAX [Concomitant]
  5. MULTI-VITAMINS [Concomitant]
  6. FIBER [Concomitant]
  7. KEPPRA [Concomitant]
     Indication: CONVULSION
     Route: 048
  8. PRILOSEC [Concomitant]
  9. ZANTAC [Concomitant]

REACTIONS (20)
  - ACCIDENTAL OVERDOSE [None]
  - ALLODYNIA [None]
  - ANXIETY [None]
  - ARTHRITIS [None]
  - CONVULSION [None]
  - DEPRESSION [None]
  - DRUG ABUSE [None]
  - EPILEPSY [None]
  - GASTROOESOPHAGEAL REFLUX DISEASE [None]
  - HYPOTHYROIDISM [None]
  - INFLUENZA LIKE ILLNESS [None]
  - INSOMNIA [None]
  - LOSS OF CONSCIOUSNESS [None]
  - MEMORY IMPAIRMENT [None]
  - MULTIPLE SCLEROSIS [None]
  - NAUSEA [None]
  - PAIN [None]
  - RESPIRATORY ARREST [None]
  - STRESS [None]
  - SUICIDE ATTEMPT [None]
